FAERS Safety Report 14558399 (Version 2)
Quarter: 2018Q1

REPORT INFORMATION
  Report Type: Spontaneous
  Country: JP (occurrence: JP)
  Receive Date: 20180221
  Receipt Date: 20180315
  Transmission Date: 20180509
  Serious: Yes (Death)
  Sender: FDA-Public Use
  Company Number: PHJP2018JP003811

PATIENT
  Sex: Male

DRUGS (2)
  1. JADENU [Suspect]
     Active Substance: DEFERASIROX
     Indication: PRODUCT USED FOR UNKNOWN INDICATION
     Dosage: UNK
     Route: 048
  2. REVOLADE TAB [Suspect]
     Active Substance: ELTROMBOPAG
     Indication: APLASTIC ANAEMIA
     Dosage: UNK
     Route: 048

REACTIONS (5)
  - Staphylococcal infection [Fatal]
  - Cytomegalovirus infection [Fatal]
  - Pseudomonas infection [Fatal]
  - Clostridium difficile colitis [Fatal]
  - Fungal infection [Fatal]

NARRATIVE: CASE EVENT DATE: 201801
